FAERS Safety Report 4434782-X (Version None)
Quarter: 2004Q3

REPORT INFORMATION
  Report Type: 
  Country: None (occurrence: None)
  Receive Date: 20040726
  Receipt Date: 20040224
  Transmission Date: 20050211
  Serious: No
  Sender: FDA-Public Use
  Company Number: USA040260139

PATIENT
  Age: 83 Year
  Sex: Female

DRUGS (2)
  1. FORTEO [Suspect]
     Indication: OSTEOPOROSIS
     Dates: start: 20040128, end: 20040212
  2. CELEBREX [Concomitant]

REACTIONS (3)
  - BACK PAIN [None]
  - HEADACHE [None]
  - NECK PAIN [None]
